FAERS Safety Report 8886256 (Version 2)
Quarter: 2012Q4

REPORT INFORMATION
  Report Type: 
  Country: US (occurrence: US)
  Receive Date: 20121105
  Receipt Date: 20121228
  Transmission Date: 20130627
  Serious: Yes (Other)
  Sender: FDA-Public Use
  Company Number: US-TEVA-367572USA

PATIENT
  Sex: Female

DRUGS (6)
  1. COPAXONE [Suspect]
     Indication: MULTIPLE SCLEROSIS
     Dates: start: 20100514
  2. BACLOFEN [Concomitant]
  3. VITAMIN D3 [Concomitant]
  4. GABAPENTIN [Concomitant]
  5. ZANAFLEX [Concomitant]
     Dosage: 12 Milligram Daily;
  6. ULTRAM [Concomitant]

REACTIONS (5)
  - Multiple sclerosis relapse [Recovering/Resolving]
  - Band sensation [Recovering/Resolving]
  - Dyspnoea [Not Recovered/Not Resolved]
  - Muscle tightness [Not Recovered/Not Resolved]
  - Musculoskeletal chest pain [Not Recovered/Not Resolved]
